FAERS Safety Report 14723143 (Version 1)
Quarter: 2018Q2

REPORT INFORMATION
  Report Type: Spontaneous
  Country: US (occurrence: US)
  Receive Date: 20180405
  Receipt Date: 20180405
  Transmission Date: 20180711
  Serious: No
  Sender: FDA-Public Use
  Company Number: US-ALKERMES INC.-ALK-2018-001970

PATIENT
  Age: 38 Year
  Sex: Female

DRUGS (2)
  1. ARISTADA [Suspect]
     Active Substance: ARIPIPRAZOLE LAUROXIL
     Indication: SCHIZOPHRENIA
     Dosage: 882 MG, QMO
     Route: 030
     Dates: start: 20170802
  2. PRAZOSIN. [Concomitant]
     Active Substance: PRAZOSIN
     Indication: ABNORMAL DREAMS
     Dosage: UNK

REACTIONS (1)
  - Abnormal dreams [Recovering/Resolving]
